FAERS Safety Report 5196501-1 (Version None)
Quarter: 2006Q4

REPORT INFORMATION
  Report Type: 
  Country: None (occurrence: None)
  Receive Date: 20061227
  Receipt Date: 20061211
  Transmission Date: 20070319
  Serious: Yes (Other)
  Sender: FDA-Public Use
  Company Number: GXKR2006GB08119

PATIENT
  Age: 77 Year
  Sex: Female

DRUGS (5)
  1. BISOPROLOL FUMARATE [Suspect]
     Indication: ATRIAL FIBRILLATION
     Dosage: 2.5 MG, ORAL
     Route: 048
     Dates: start: 20061025, end: 20061113
  2. ASPIRIN [Concomitant]
  3. INDAPAMIDE [Concomitant]
  4. RAMIPRIL [Concomitant]
  5. SIMVASTATIN [Concomitant]

REACTIONS (3)
  - CARDIAC FAILURE [None]
  - DYSPNOEA [None]
  - EXERCISE TOLERANCE DECREASED [None]
